FAERS Safety Report 22589347 (Version 1)
Quarter: 2023Q2

REPORT INFORMATION
  Report Type: Spontaneous
  Country: US (occurrence: US)
  Receive Date: 20230612
  Receipt Date: 20230612
  Transmission Date: 20230722
  Serious: Yes (Hospitalization, Other)
  Sender: FDA-Public Use
  Company Number: US-FreseniusKabi-FK202308410

PATIENT
  Age: 62 Year
  Sex: Female

DRUGS (3)
  1. FLUOROURACIL [Suspect]
     Active Substance: FLUOROURACIL
     Indication: Colon cancer
     Dosage: 9 OF 12 CYCLES
     Dates: end: 20150401
  2. LEUCOVORIN [Suspect]
     Active Substance: LEUCOVORIN
     Indication: Colon cancer
     Dosage: 9 OF 12 CYCLE
     Dates: end: 20150401
  3. OXALIPLATIN [Suspect]
     Active Substance: OXALIPLATIN
     Indication: Colon cancer
     Dosage: 9 OF 12 CYCLES
     Dates: end: 20150401

REACTIONS (1)
  - Neuropathy peripheral [Recovering/Resolving]
